FAERS Safety Report 12264709 (Version 2)
Quarter: 2016Q2

REPORT INFORMATION
  Report Type: Report from Study
  Country: TR (occurrence: TR)
  Receive Date: 20160413
  Receipt Date: 20160419
  Transmission Date: 20160815
  Serious: Yes (Death)
  Sender: FDA-Public Use
  Company Number: TR-ALEXION PHARMACEUTICALS INC-A201602628

PATIENT
  Age: 10 Month
  Sex: Male
  Weight: 4.3 kg

DRUGS (2)
  1. ENB-0040 [Suspect]
     Active Substance: ASFOTASE ALFA
     Dosage: 9 MG/KG, QW
     Route: 058
  2. ENB-0040 [Suspect]
     Active Substance: ASFOTASE ALFA
     Indication: HYPOPHOSPHATASIA
     Dosage: 2 MG/KG, UNK
     Route: 058
     Dates: start: 20150825

REACTIONS (2)
  - Sepsis [Fatal]
  - Pneumonia [Fatal]

NARRATIVE: CASE EVENT DATE: 20160228
